FAERS Safety Report 5605583-1 (Version None)
Quarter: 2008Q1

REPORT INFORMATION
  Report Type: 
  Country: None (occurrence: None)
  Receive Date: 20080125
  Receipt Date: 20080125
  Transmission Date: 20080703
  Serious: No
  Sender: FDA-Public Use
  Company Number: None

PATIENT
  Age: 4 Year
  Sex: Female
  Weight: 21.4 kg

DRUGS (1)
  1. SULFATRIM [Suspect]
     Dosage: ONE TSP BID PO
     Dates: start: 20080122, end: 20080123

REACTIONS (1)
  - RASH [None]
